FAERS Safety Report 9388004 (Version 2)
Quarter: 2014Q2

REPORT INFORMATION
  Report Type: Spontaneous
  Country: IT (occurrence: None)
  Receive Date: 20130703
  Receipt Date: 20140425
  Transmission Date: 20141212
  Serious: Yes (Other)
  Sender: FDA-Public Use
  Company Number: 2013CP000071

PATIENT
  Age: 56 Year
  Sex: Male

DRUGS (3)
  1. PERFALGAN [Suspect]
     Indication: ABDOMINAL PAIN UPPER
     Dosage: 50 ML; TOTAL, IV
     Route: 042
     Dates: start: 20130409
  2. TACHIDOL [Suspect]
     Indication: ARTHROPATHY
     Dosage: 1 DF; TOTAL; ORAL
     Route: 048
     Dates: start: 20130409
  3. LANSOX [Concomitant]

REACTIONS (4)
  - Abdominal pain [None]
  - Hyperhidrosis [None]
  - Transaminases increased [None]
  - Cholangitis [None]
